FAERS Safety Report 6942514-6 (Version None)
Quarter: 2010Q3

REPORT INFORMATION
  Report Type: 
  Country: None (occurrence: None)
  Receive Date: 20100826
  Receipt Date: 20100817
  Transmission Date: 20110219
  Serious: Yes (Other)
  Sender: FDA-Public Use
  Company Number: GB-ELI_LILLY_AND_COMPANY-GB201005006928

PATIENT
  Age: 45 Year
  Sex: Male
  Weight: 127 kg

DRUGS (17)
  1. BYETTA [Suspect]
     Indication: DIABETES MELLITUS
     Dosage: 10 UG, 2/D
     Route: 058
     Dates: start: 20090921, end: 20100514
  2. AMITRIPTYLINE HCL [Concomitant]
     Dosage: 30 MG, UNKNOWN
  3. AMLODIPINE [Concomitant]
     Dosage: 5 MG, UNKNOWN
  4. ATORVASTATIN [Concomitant]
     Dosage: 40 MG, UNKNOWN
  5. BECLOMETHASONE DIPROPIONATE [Concomitant]
     Dosage: 1 D/F, 2/D
     Route: 055
  6. GABAPENTIN [Concomitant]
     Dosage: 600 MG, 3/D
  7. GLUCOSAMINE [Concomitant]
     Dosage: 500 MG, 3/D
  8. IPRATROPIUM BROMIDE [Concomitant]
     Dosage: UNK, UNKNOWN
     Route: 055
  9. LANSOPRAZOLE [Concomitant]
     Dosage: 30 MG, 2/D
  10. METOCLOPRAMIDE [Concomitant]
     Dosage: 10 MG, DAILY (1/D)
  11. NOVOMIX                            /01475801/ [Concomitant]
     Dosage: UNK, UNKNOWN
  12. ACETAMINOPHEN [Concomitant]
     Dosage: 500 MG, 4/D
  13. RAMIPRIL [Concomitant]
     Dosage: 10 MG, UNKNOWN
  14. RANITIDINE [Concomitant]
     Dosage: 300 MG, DAILY (1/D)
  15. ALBUTEROL SULFATE AUTOHALER [Concomitant]
     Dosage: UNK, AS NEEDED
     Route: 055
  16. SALMETEROL [Concomitant]
     Dosage: UNK, UNKNOWN
  17. UNIPHYL [Concomitant]
     Dosage: 400 MG, 2/D

REACTIONS (6)
  - ASTHMA [None]
  - BACK PAIN [None]
  - HYPERGLYCAEMIA [None]
  - OFF LABEL USE [None]
  - PANCREATITIS ACUTE [None]
  - WEIGHT DECREASED [None]
